FAERS Safety Report 4787678-8 (Version None)
Quarter: 2005Q3

REPORT INFORMATION
  Report Type: 
  Country: None (occurrence: None)
  Receive Date: 20050926
  Receipt Date: 20050822
  Transmission Date: 20060218
  Serious: Yes (Hospitalization)
  Sender: FDA-Public Use
  Company Number: 217117

PATIENT
  Age: 37 Year
  Sex: Female
  Weight: 48.5 kg

DRUGS (4)
  1. AVASTIN [Suspect]
     Indication: BREAST CANCER METASTATIC
     Dosage: 570 MG, Q2W, INTRAVENOUS
     Route: 042
     Dates: start: 20050616
  2. TARCEVA [Suspect]
     Indication: BREAST CANCER METASTATIC
     Dosage: 150 MG, QD, ORAL
     Route: 048
     Dates: start: 20050707
  3. GABAPENTIN [Concomitant]
  4. UNSPECIFIED CONCOMITANT DRUGS (GENERIC COMPONENT(S) [Concomitant]

REACTIONS (1)
  - DEEP VEIN THROMBOSIS [None]
